FAERS Safety Report 11622394 (Version 1)
Quarter: 2015Q4

REPORT INFORMATION
  Report Type: Spontaneous
  Country: TN (occurrence: TN)
  Receive Date: 20151013
  Receipt Date: 20151013
  Transmission Date: 20160304
  Serious: Yes (Life-Threatening, Hospitalization, Other)
  Sender: FDA-Public Use
  Company Number: TN-BAYER-2015-438207

PATIENT
  Age: 86 Year
  Sex: Female
  Weight: 64 kg

DRUGS (1)
  1. MAGNEVIST [Suspect]
     Active Substance: GADOPENTETATE DIMEGLUMINE
     Indication: NUCLEAR MAGNETIC RESONANCE IMAGING HEART
     Dosage: 20 ML, ONCE
     Dates: start: 20150930, end: 20150930

REACTIONS (6)
  - Infection [None]
  - Hypertrophic cardiomyopathy [None]
  - Tremor [Not Recovered/Not Resolved]
  - Altered state of consciousness [Not Recovered/Not Resolved]
  - Chills [Not Recovered/Not Resolved]
  - Hypothermia [None]

NARRATIVE: CASE EVENT DATE: 20150930
